FAERS Safety Report 10549422 (Version 1)
Quarter: 2014Q4

REPORT INFORMATION
  Report Type: Spontaneous
  Country: US (occurrence: US)
  Receive Date: 20141028
  Receipt Date: 20141028
  Transmission Date: 20150529
  Serious: Yes (Other)
  Sender: FDA-Public Use
  Company Number: US-BAYER-2014-154386

PATIENT
  Age: 22 Year
  Sex: Female

DRUGS (1)
  1. MIRENA [Suspect]
     Active Substance: LEVONORGESTREL
     Dosage: 20 MCG/24HR, CONT
     Route: 015
     Dates: start: 20111008, end: 20140402

REACTIONS (12)
  - Device difficult to use [None]
  - Complication of device removal [None]
  - Injury [None]
  - Drug ineffective [None]
  - Device dislocation [None]
  - Post procedural discomfort [None]
  - High risk pregnancy [None]
  - Medical device pain [None]
  - Pain [None]
  - Device breakage [None]
  - Pregnancy with contraceptive device [None]
  - Anxiety [None]

NARRATIVE: CASE EVENT DATE: 20111008
